FAERS Safety Report 8949467 (Version 1)
Quarter: 2012Q4

REPORT INFORMATION
  Report Type: 
  Country: IT (occurrence: IT)
  Receive Date: 20121206
  Receipt Date: 20121206
  Transmission Date: 20130627
  Serious: Yes (Other)
  Sender: FDA-Public Use
  Company Number: IT-BRISTOL-MYERS SQUIBB COMPANY-17187253

PATIENT
  Age: 73 Year
  Sex: Male

DRUGS (1)
  1. ABILIFY TABS 5 MG [Suspect]
     Dates: start: 2006

REACTIONS (1)
  - Prostate cancer [Unknown]
